FAERS Safety Report 19058997 (Version 1)
Quarter: 2021Q1

REPORT INFORMATION
  Report Type: Spontaneous
  Country: ES (occurrence: ES)
  Receive Date: 20210325
  Receipt Date: 20210325
  Transmission Date: 20210420
  Serious: Yes (Hospitalization)
  Sender: FDA-Public Use
  Company Number: ES-TEVA-2021-ES-1892589

PATIENT
  Age: 65 Year
  Sex: Female

DRUGS (2)
  1. VALSARTAN / HIDROCLOROTIAZIDA 320 MG/25 MG COMPRIMIDOS RECUBIERTOS CON [Suspect]
     Active Substance: HYDROCHLOROTHIAZIDE\VALSARTAN
     Indication: HYPERTENSION
     Dosage: 1 DOSAGE FORMS DAILY; ?1 BREAKFAST
     Route: 048
     Dates: start: 20190615, end: 20210109
  2. ESPIRONOLACTONA ACCORD 25 MG COMPRIMIDOS RECUBIERTOS CON PELICULA EFG, [Concomitant]
     Indication: HYPERTENSION
     Dosage: 25 MILLIGRAM DAILY; ?1 DINNER
     Route: 048
     Dates: start: 20190311, end: 20210223

REACTIONS (3)
  - Hyponatraemia [Recovered/Resolved]
  - Metabolic encephalopathy [Recovering/Resolving]
  - Epilepsy [Recovering/Resolving]

NARRATIVE: CASE EVENT DATE: 20210209
